FAERS Safety Report 18235790 (Version 1)
Quarter: 2020Q3

REPORT INFORMATION
  Report Type: Report from Study
  Country: CR (occurrence: CR)
  Receive Date: 20200905
  Receipt Date: 20200905
  Transmission Date: 20201103
  Serious: Yes (Other)
  Sender: FDA-Public Use
  Company Number: NVSC2020CR243335

PATIENT
  Age: 67 Year
  Sex: Male

DRUGS (1)
  1. EXFORGE HCT [Suspect]
     Active Substance: AMLODIPINE BESYLATE\HYDROCHLOROTHIAZIDE\VALSARTAN
     Indication: PRODUCT USED FOR UNKNOWN INDICATION
     Dosage: STARTED 4 YEARS AND 3 MONTHS AGO
     Route: 065

REACTIONS (4)
  - Rheumatoid arthritis [Unknown]
  - Arrhythmia [Recovering/Resolving]
  - Mobility decreased [Unknown]
  - Blood pressure increased [Unknown]
